FAERS Safety Report 7140336-7 (Version None)
Quarter: 2010Q4

REPORT INFORMATION
  Report Type: 
  Country: None (occurrence: None)
  Receive Date: 20101207
  Receipt Date: 20101123
  Transmission Date: 20110411
  Serious: Yes (Hospitalization)
  Sender: FDA-Public Use
  Company Number: US-BIOGENIDEC-2010BI041903

PATIENT
  Age: 29 Year
  Sex: Female

DRUGS (20)
  1. TYSABRI [Suspect]
     Indication: MULTIPLE SCLEROSIS
     Route: 042
     Dates: start: 20070401
  2. GABAPENTIN [Concomitant]
     Route: 048
  3. TIZANIDINE [Concomitant]
     Route: 048
  4. DIAZEPAM [Concomitant]
     Route: 048
  5. DIAZEPAM [Concomitant]
     Route: 048
  6. POTASSIUM CHLORIDE [Concomitant]
     Route: 048
  7. DICLOFENAC [Concomitant]
     Route: 048
  8. CYCLOBENAZPRINE [Concomitant]
     Route: 048
  9. FAMOTIDINE [Concomitant]
     Route: 048
  10. TEMAZEPAM [Concomitant]
     Route: 048
  11. LEXAPRO [Concomitant]
     Route: 048
  12. DETROL [Concomitant]
     Route: 048
  13. NEOCON [Concomitant]
     Route: 048
  14. LORAZEPAM [Concomitant]
     Route: 048
  15. NAPROXEN [Concomitant]
     Route: 048
  16. CALCIUM [Concomitant]
  17. IBUPROFEN [Concomitant]
  18. BIRTH CONTROL (NOS) [Concomitant]
  19. VICODIN [Concomitant]
     Indication: MUSCLE STRAIN
  20. DILAUDID [Concomitant]

REACTIONS (5)
  - MULTIPLE SCLEROSIS RELAPSE [None]
  - MUSCLE STRAIN [None]
  - MUSCULAR WEAKNESS [None]
  - PNEUMONIA [None]
  - URINARY TRACT INFECTION [None]
